FAERS Safety Report 10935219 (Version 1)
Quarter: 2015Q1

REPORT INFORMATION
  Report Type: Spontaneous
  Country: US (occurrence: None)
  Receive Date: 20150129
  Receipt Date: 20150129
  Transmission Date: 20150721
  Serious: No
  Sender: FDA-Public Use
  Company Number: A-NJ2014-106296

PATIENT
  Age: 83 Year
  Sex: Female

DRUGS (8)
  1. PRO-AIR (PROCATEROL HYDROCHLORIDE) [Concomitant]
  2. OPSUMIT [Suspect]
     Active Substance: MACITENTAN
     Indication: PULMONARY ARTERIAL HYPERTENSION
     Route: 048
     Dates: start: 20140826
  3. LASIX [Concomitant]
     Active Substance: FUROSEMIDE
  4. NASONEX [Concomitant]
     Active Substance: MOMETASONE FUROATE
  5. BYSTOLIC [Concomitant]
     Active Substance: NEBIVOLOL HYDROCHLORIDE
  6. OMEPRAZOLE. [Concomitant]
     Active Substance: OMEPRAZOLE
  7. ALLEGRA (FEXOFENADINE HYDROCHLORIDE) [Concomitant]
  8. AMLODIPINE [Concomitant]
     Active Substance: AMLODIPINE BESYLATE

REACTIONS (6)
  - Feeling cold [None]
  - Hot flush [None]
  - Dizziness [None]
  - Hypotension [None]
  - Abdominal pain upper [None]
  - Fatigue [None]

NARRATIVE: CASE EVENT DATE: 201409
